FAERS Safety Report 10328827 (Version 1)
Quarter: 2014Q3

REPORT INFORMATION
  Report Type: Spontaneous
  Country: US (occurrence: US)
  Receive Date: 20140721
  Receipt Date: 20140721
  Transmission Date: 20150326
  Serious: No
  Sender: FDA-Public Use
  Company Number: US-PFIZER INC-2014198911

PATIENT
  Age: 55 Year
  Sex: Male
  Weight: 231.75 kg

DRUGS (2)
  1. TYLENOL [Concomitant]
     Active Substance: ACETAMINOPHEN
     Dosage: UNK
  2. VIAGRA [Suspect]
     Active Substance: SILDENAFIL CITRATE
     Indication: ERECTILE DYSFUNCTION
     Dosage: 30 MG, 2X/DAY
     Dates: start: 2010

REACTIONS (4)
  - Skin discolouration [Unknown]
  - Penile discharge [Unknown]
  - Skin odour abnormal [Unknown]
  - Penis disorder [Unknown]

NARRATIVE: CASE EVENT DATE: 20140714
